FAERS Safety Report 8155232 (Version 7)
Quarter: 2019Q1

REPORT INFORMATION
  Report Type: Report from Study
  Country: US (occurrence: US)
  Receive Date: 20110926
  Receipt Date: 20190111
  Transmission Date: 20190418
  Serious: Yes (Hospitalization, Other)
  Sender: FDA-Public Use
  Company Number: US-CELGENEUS-163-21880-11091934

PATIENT
  Age: 66 Year
  Sex: Female
  Weight: 58.5 kg

DRUGS (8)
  1. REVLIMID [Suspect]
     Active Substance: LENALIDOMIDE
     Dosage: 15 MILLIGRAM
     Route: 048
     Dates: start: 20110524, end: 20110602
  2. BORTEZOMIB. [Suspect]
     Active Substance: BORTEZOMIB
     Indication: PLASMA CELL MYELOMA
     Dosage: 1.3 MILLIGRAM/SQ. METER
     Route: 041
     Dates: start: 20110531, end: 20110624
  3. REVLIMID [Suspect]
     Active Substance: LENALIDOMIDE
     Dosage: 140 MILLIGRAM
     Route: 048
     Dates: start: 20111206, end: 20120301
  4. REVLIMID [Suspect]
     Active Substance: LENALIDOMIDE
     Dosage: 15 MILLIGRAM
     Route: 048
     Dates: start: 20110508, end: 20110508
  5. REVLIMID [Suspect]
     Active Substance: LENALIDOMIDE
     Dosage: 140 MILLIGRAM
     Route: 048
     Dates: start: 20110614, end: 20110628
  6. REVLIMID [Suspect]
     Active Substance: LENALIDOMIDE
     Dosage: 140 MILLIGRAM
     Route: 048
     Dates: start: 20120313, end: 20130424
  7. REVLIMID [Suspect]
     Active Substance: LENALIDOMIDE
     Indication: PLASMA CELL MYELOMA
     Dosage: 25 MILLIGRAM
     Route: 048
     Dates: start: 20110412, end: 20110426
  8. POTASSIUM [Concomitant]
     Active Substance: POTASSIUM
     Indication: SUPPLEMENTATION THERAPY
     Route: 065
     Dates: start: 201106

REACTIONS (1)
  - Seizure [Recovered/Resolved]

NARRATIVE: CASE EVENT DATE: 20110602
